FAERS Safety Report 17506989 (Version 1)
Quarter: 2020Q1

REPORT INFORMATION
  Report Type: Spontaneous
  Country: US (occurrence: US)
  Receive Date: 20200306
  Receipt Date: 20200306
  Transmission Date: 20200409
  Serious: Yes (Hospitalization)
  Sender: FDA-Public Use
  Company Number: US-EMCURE PHARMACEUTICALS LTD-2020-EPL-000212

PATIENT
  Age: 10 Year
  Sex: Male

DRUGS (2)
  1. FUROSEMIDE. [Suspect]
     Active Substance: FUROSEMIDE
     Dosage: 240 MG, 6 X 40-MG TABLETS
  2. COLCHICINE. [Suspect]
     Active Substance: COLCHICINE
     Dosage: 4.8 MG, 8 X 0.6-MG TABLETS

REACTIONS (3)
  - Toxicity to various agents [Recovered/Resolved]
  - Electrolyte imbalance [Recovering/Resolving]
  - Accidental exposure to product [Unknown]
